FAERS Safety Report 4350457-X (Version None)
Quarter: 2004Q2

REPORT INFORMATION
  Report Type: 
  Country: None (occurrence: None)
  Receive Date: 20040430
  Receipt Date: 20040421
  Transmission Date: 20050107
  Serious: Yes (Life-Threatening, Hospitalization)
  Sender: FDA-Public Use
  Company Number: PHRM2004FR01615

PATIENT
  Age: 71 Year
  Sex: Male
  Weight: 90 kg

DRUGS (3)
  1. VOLTAREN [Suspect]
     Dosage: 75 MG, BID
     Route: 048
     Dates: start: 20031113, end: 20040202
  2. DYNASTAT [Suspect]
     Dosage: 80 MG, ONE DAY
     Route: 042
     Dates: start: 20040202
  3. BI-PROFENID [Suspect]
     Dosage: 150 MG, BID
     Route: 048
     Dates: start: 20040203, end: 20040215

REACTIONS (13)
  - ABDOMINAL PAIN [None]
  - ARTERIAL HAEMORRHAGE [None]
  - CONSTIPATION [None]
  - DRUG INTERACTION [None]
  - DUODENAL ULCER [None]
  - DUODENAL ULCER HAEMORRHAGE [None]
  - GASTRECTOMY [None]
  - HAEMOGLOBIN DECREASED [None]
  - HIP ARTHROPLASTY [None]
  - LAPAROTOMY [None]
  - MELAENA [None]
  - SHOCK HAEMORRHAGIC [None]
  - VOMITING [None]
